FAERS Safety Report 5208197-0 (Version None)
Quarter: 2007Q1

REPORT INFORMATION
  Report Type: 
  Country: None (occurrence: None)
  Receive Date: 20070115
  Receipt Date: 20070111
  Transmission Date: 20070707
  Serious: Yes (Other)
  Sender: FDA-Public Use
  Company Number: GB-GLAXOSMITHKLINE-B0432409A

PATIENT
  Age: 54 Year
  Sex: Female
  Weight: 130 kg

DRUGS (2)
  1. MALARONE [Suspect]
     Indication: MALARIA PROPHYLAXIS
     Dosage: 1TAB SINGLE DOSE
     Route: 048
     Dates: start: 20060726, end: 20060727
  2. CETIRIZINE HCL [Concomitant]

REACTIONS (6)
  - FEELING COLD [None]
  - IMMOBILE [None]
  - MUSCLE DISORDER [None]
  - PARALYSIS [None]
  - SENSORY DISTURBANCE [None]
  - VISION BLURRED [None]
